FAERS Safety Report 5097512-7 (Version None)
Quarter: 2006Q3

REPORT INFORMATION
  Report Type: 
  Country: None (occurrence: None)
  Receive Date: 20060901
  Receipt Date: 20060814
  Transmission Date: 20061208
  Serious: Yes (Other)
  Sender: FDA-Public Use
  Company Number: DE200608002863

PATIENT
  Age: 73 Year
  Sex: Male

DRUGS (4)
  1. YENTREVE (DULOXETINE HYDROCHLORIDE) CAPSULE [Suspect]
     Indication: STRESS URINARY INCONTINENCE
     Dosage: SEE IMAGE, ORAL
     Route: 048
     Dates: start: 20060710
  2. YENTREVE (DULOXETINE HYDROCHLORIDE) CAPSULE [Suspect]
     Indication: STRESS URINARY INCONTINENCE
     Dosage: SEE IMAGE, ORAL
     Route: 048
     Dates: start: 20060701
  3. YENTREVE (DULOXETINE HYDROCHLORIDE) CAPSULE [Suspect]
     Indication: STRESS URINARY INCONTINENCE
     Dosage: SEE IMAGE, ORAL
     Route: 048
     Dates: start: 20060814
  4. TEGRETOL [Concomitant]

REACTIONS (5)
  - BLOOD PRESSURE FLUCTUATION [None]
  - BLOOD PRESSURE INCREASED [None]
  - CONDITION AGGRAVATED [None]
  - RESTLESS LEGS SYNDROME [None]
  - RESTLESSNESS [None]
